FAERS Safety Report 17340565 (Version 2)
Quarter: 2020Q1

REPORT INFORMATION
  Report Type: Report from Study
  Country: US (occurrence: US)
  Receive Date: 20200129
  Receipt Date: 20200210
  Transmission Date: 20200409
  Serious: Yes (Other)
  Sender: FDA-Public Use
  Company Number: US-EISAI MEDICAL RESEARCH-EC-2020-068772

PATIENT
  Age: 68 Year
  Sex: Female

DRUGS (5)
  1. KEYTRUDA [Concomitant]
     Active Substance: PEMBROLIZUMAB
  2. LENVIMA [Suspect]
     Active Substance: LENVATINIB
     Route: 048
     Dates: start: 20200128
  3. LENVIMA [Suspect]
     Active Substance: LENVATINIB
     Indication: ENDOMETRIAL CANCER
     Route: 048
     Dates: start: 20200115, end: 20200123
  4. TRAMADOL. [Concomitant]
     Active Substance: TRAMADOL
  5. MARINOL [Suspect]
     Active Substance: DRONABINOL
     Indication: DECREASED APPETITE
     Dosage: DOSE AND FREQUENCY UNKNOWN
     Route: 065

REACTIONS (7)
  - Decreased appetite [Not Recovered/Not Resolved]
  - Asthenia [Not Recovered/Not Resolved]
  - Abdominal pain [Not Recovered/Not Resolved]
  - Dehydration [Not Recovered/Not Resolved]
  - Delusion [Recovered/Resolved]
  - Posterior reversible encephalopathy syndrome [Recovered/Resolved]
  - Nausea [Not Recovered/Not Resolved]

NARRATIVE: CASE EVENT DATE: 202001
